FAERS Safety Report 4997999-1 (Version None)
Quarter: 2006Q2

REPORT INFORMATION
  Report Type: 
  Country: None (occurrence: None)
  Receive Date: 20060508
  Receipt Date: 20060501
  Transmission Date: 20061013
  Serious: Yes (Other)
  Sender: FDA-Public Use
  Company Number: HQWYE144603MAY06

PATIENT
  Age: 62 Year
  Sex: Female

DRUGS (4)
  1. ADVIL [Suspect]
     Indication: BACK PAIN
     Dosage: 1 TABLET TWICE (2ND TABLET 3 HOURS AFTER THE FIRST), ORAL
     Route: 048
     Dates: start: 20060430, end: 20060430
  2. ALAVERT [Concomitant]
  3. BENADRYL [Concomitant]
  4. LEVOXYL [Concomitant]

REACTIONS (3)
  - ANAPHYLACTIC SHOCK [None]
  - DRUG HYPERSENSITIVITY [None]
  - URTICARIA [None]
